FAERS Safety Report 19063675 (Version 1)
Quarter: 2021Q1

REPORT INFORMATION
  Report Type: Report from Study
  Country: CA (occurrence: CA)
  Receive Date: 20210326
  Receipt Date: 20210326
  Transmission Date: 20210420
  Serious: Yes (Hospitalization)
  Sender: FDA-Public Use
  Company Number: CA-PFIZER INC-2021320293

PATIENT
  Age: 49 Year
  Sex: Male

DRUGS (5)
  1. METHOTREXATE SODIUM. [Suspect]
     Active Substance: METHOTREXATE SODIUM
     Dosage: 200 MG
     Route: 030
  2. CELECOXIB. [Suspect]
     Active Substance: CELECOXIB
     Dosage: UNK, 1X/DAY
     Route: 048
  3. DICLOFENAC [Concomitant]
     Active Substance: DICLOFENAC
     Route: 061
  4. IBUPROFEN. [Concomitant]
     Active Substance: IBUPROFEN
     Route: 048
  5. CELEBREX [Concomitant]
     Active Substance: CELECOXIB
     Dosage: 200 MG, 1X/DAY
     Route: 048

REACTIONS (2)
  - Therapeutic response unexpected [Unknown]
  - Infarction [Unknown]
